FAERS Safety Report 17212435 (Version 3)
Quarter: 2020Q1

REPORT INFORMATION
  Report Type: Report from Study
  Country: US (occurrence: US)
  Receive Date: 20191230
  Receipt Date: 20200327
  Transmission Date: 20200409
  Serious: No
  Sender: FDA-Public Use
  Company Number: NVSC2019US081750

PATIENT
  Sex: Female
  Weight: 48.08 kg

DRUGS (3)
  1. ENTRESTO [Suspect]
     Active Substance: SACUBITRIL\VALSARTAN
     Indication: CARDIAC FAILURE CHRONIC
     Dosage: 1 DF(SACUBITRIL 24 MG, VALSARTAN 26 MG) BID
     Route: 048
  2. ENTRESTO [Suspect]
     Active Substance: SACUBITRIL\VALSARTAN
     Dosage: 1 DF (SACUBITRIL 24 MG, VALSARTAN 26 MG) BID
     Route: 048
  3. LASIX [Concomitant]
     Active Substance: FUROSEMIDE
     Indication: PRODUCT USED FOR UNKNOWN INDICATION
     Route: 065

REACTIONS (12)
  - Gait disturbance [Unknown]
  - Insomnia [Unknown]
  - Pain [Unknown]
  - Depression [Unknown]
  - Sciatica [Unknown]
  - Memory impairment [Unknown]
  - Decreased appetite [Not Recovered/Not Resolved]
  - Ageusia [Unknown]
  - Dyspnoea [Recovered/Resolved]
  - Oliguria [Unknown]
  - Malaise [Unknown]
  - Fall [Unknown]
